FAERS Safety Report 8042757-7 (Version None)
Quarter: 2012Q1

REPORT INFORMATION
  Report Type: 
  Country: None (occurrence: None)
  Receive Date: 20120112
  Receipt Date: 20120106
  Transmission Date: 20120608
  Serious: Yes (Hospitalization)
  Sender: FDA-Public Use
  Company Number: US-BAYER-2011-046179

PATIENT
  Age: 31 Year
  Sex: Female
  Weight: 95.238 kg

DRUGS (14)
  1. ALBUTEROL [Concomitant]
  2. PRILOSEC [Concomitant]
  3. ZYRTEC-D 12 HOUR [Concomitant]
     Indication: RHINITIS SEASONAL
  4. NSAID'S [Concomitant]
  5. ACIPHEX [Concomitant]
     Indication: GASTROOESOPHAGEAL REFLUX DISEASE
     Dosage: UNK
     Dates: start: 20080315, end: 20080405
  6. LEXAPRO [Concomitant]
     Indication: DEPRESSION
  7. LEXAPRO [Concomitant]
  8. METHYLPREDNISOLONE [Concomitant]
  9. NEXIUM [Concomitant]
  10. YAZ [Suspect]
     Indication: PREMENSTRUAL SYNDROME
     Dosage: UNK
     Dates: start: 20080323, end: 20080405
  11. MINOCYCLINE HCL [Concomitant]
  12. YAZ [Suspect]
  13. LEXAPRO [Concomitant]
     Indication: PREMENSTRUAL SYNDROME
  14. CLARITIN [Concomitant]
     Indication: RHINITIS SEASONAL

REACTIONS (9)
  - DYSPNOEA [None]
  - PAIN [None]
  - MENTAL DISORDER [None]
  - EMOTIONAL DISTRESS [None]
  - ANXIETY [None]
  - DEPRESSION [None]
  - CHEST DISCOMFORT [None]
  - PULMONARY EMBOLISM [None]
  - ANHEDONIA [None]
